FAERS Safety Report 9788037 (Version 1)
Quarter: 2013Q4

REPORT INFORMATION
  Report Type: Spontaneous
  Country: US (occurrence: None)
  Receive Date: 20131227
  Receipt Date: 20131227
  Transmission Date: 20140711
  Serious: Yes (Hospitalization)
  Sender: FDA-Public Use
  Company Number: None

PATIENT
  Age: 59 Year
  Sex: Female
  Weight: 88.8 kg

DRUGS (4)
  1. DILANTIN [Suspect]
     Indication: CONVULSION
     Dosage: CHRONIC
     Route: 048
  2. NEURONTIN [Concomitant]
  3. VALIUM [Concomitant]
  4. EFFEXOR [Concomitant]

REACTIONS (4)
  - Encephalopathy [None]
  - Lethargy [None]
  - Toxicity to various agents [None]
  - Sleep apnoea syndrome [None]
